FAERS Safety Report 9603712 (Version 2)
Quarter: 2013Q4

REPORT INFORMATION
  Report Type: Spontaneous
  Country: HK (occurrence: ZA)
  Receive Date: 20131007
  Receipt Date: 20131017
  Transmission Date: 20140711
  Serious: Yes (Hospitalization)
  Sender: FDA-Public Use
  Company Number: HK-ABBVIE-13P-075-1153407-00

PATIENT
  Age: 71 Year
  Sex: Male

DRUGS (1)
  1. HUMIRA [Suspect]
     Indication: RHEUMATOID ARTHRITIS
     Route: 058
     Dates: start: 201211

REACTIONS (18)
  - Septic shock [Recovered/Resolved]
  - Respiratory failure [Recovered/Resolved]
  - Pneumonia [Recovering/Resolving]
  - Cough [Unknown]
  - Headache [Unknown]
  - Nasal obstruction [Unknown]
  - Dyspnoea exertional [Unknown]
  - Haemoptysis [Unknown]
  - Sputum increased [Unknown]
  - Pleuritic pain [Unknown]
  - Dehydration [Unknown]
  - Hypotension [Unknown]
  - Sunburn [Recovered/Resolved]
  - Rales [Unknown]
  - Pyrexia [Unknown]
  - Throat tightness [Recovering/Resolving]
  - Bronchial secretion retention [Recovering/Resolving]
  - Hypovolaemia [Recovered/Resolved]
